FAERS Safety Report 19772832 (Version 1)
Quarter: 2021Q3

REPORT INFORMATION
  Report Type: Spontaneous
  Country: CN (occurrence: CN)
  Receive Date: 20210831
  Receipt Date: 20210831
  Transmission Date: 20211014
  Serious: Yes (Hospitalization)
  Sender: FDA-Public Use
  Company Number: CN-PFIZER INC-202101083921

PATIENT
  Age: 8 Year
  Sex: Male
  Weight: 19.5 kg

DRUGS (4)
  1. VINDESINE SULFATE [Suspect]
     Active Substance: VINDESINE SULFATE
     Indication: CHEMOTHERAPY
     Dosage: 2.3 MG, WEEKLY
     Route: 041
     Dates: start: 20210801, end: 20210815
  2. CYTARABINE. [Suspect]
     Active Substance: CYTARABINE
     Indication: CHEMOTHERAPY
     Dosage: 2 G, ALTERNATE DAY
     Route: 041
     Dates: start: 20210801, end: 20210803
  3. DEXAMETHASONE. [Suspect]
     Active Substance: DEXAMETHASONE
     Indication: CHEMOTHERAPY
     Dosage: 3 MG, 2X/DAY
     Dates: start: 20210801
  4. PEGASPARGASE [Suspect]
     Active Substance: PEGASPARGASE
     Indication: CHEMOTHERAPY
     Dosage: 1565U (2000U/M2D) D3
     Dates: start: 20210801

REACTIONS (4)
  - Body temperature increased [Unknown]
  - Myelosuppression [Unknown]
  - Heart rate increased [Unknown]
  - Pyrexia [Unknown]

NARRATIVE: CASE EVENT DATE: 20210814
